FAERS Safety Report 23507118 (Version 2)
Quarter: 2024Q2

REPORT INFORMATION
  Report Type: Spontaneous
  Country: NZ (occurrence: NZ)
  Receive Date: 20240209
  Receipt Date: 20240411
  Transmission Date: 20240716
  Serious: Yes (Death)
  Sender: FDA-Public Use
  Company Number: NZ-MYLANLABS-2024M1009867

PATIENT
  Age: 71 Year
  Sex: Female

DRUGS (7)
  1. CLOZARIL [Suspect]
     Active Substance: CLOZAPINE
     Indication: Schizophrenia
     Dosage: UNK
     Route: 048
     Dates: start: 20181220
  2. CLOZARIL [Suspect]
     Active Substance: CLOZAPINE
     Dosage: 75 MILLIGRAM, (LAST DOSE 75MG)
     Route: 048
     Dates: start: 20240129, end: 20240129
  3. CLOZARIL [Suspect]
     Active Substance: CLOZAPINE
     Dosage: UNK, BID (25MG MANE, 50MG NOCTE)
     Route: 048
     Dates: start: 2018, end: 20240129
  4. OMEPRAZOLE [Concomitant]
     Active Substance: OMEPRAZOLE
     Dosage: UNK
     Route: 065
  5. ACETAMINOPHEN [Concomitant]
     Active Substance: ACETAMINOPHEN
     Dosage: UNK
     Route: 065
  6. DOCUSATE SODIUM\SENNOSIDES A AND B [Concomitant]
     Active Substance: DOCUSATE SODIUM\SENNOSIDES A AND B
     Dosage: UNK
     Route: 065
  7. ZOLEDRONIC ACID [Concomitant]
     Active Substance: ZOLEDRONIC ACID
     Dosage: UNK
     Route: 065

REACTIONS (3)
  - Pneumonia [Fatal]
  - Neutrophil count increased [Unknown]
  - White blood cell count increased [Unknown]

NARRATIVE: CASE EVENT DATE: 20240129
